FAERS Safety Report 19740436 (Version 2)
Quarter: 2021Q3

REPORT INFORMATION
  Report Type: Report from Study
  Country: US (occurrence: US)
  Receive Date: 20210824
  Receipt Date: 20210907
  Transmission Date: 20211014
  Serious: Yes (Other)
  Sender: FDA-Public Use
  Company Number: US-TEVA-2021-US-1944779

PATIENT
  Age: 17 Year
  Sex: Male

DRUGS (2)
  1. WELLBUTRIN [Suspect]
     Active Substance: BUPROPION HYDROCHLORIDE
     Indication: PRODUCT USED FOR UNKNOWN INDICATION
     Dosage: 150 MILLIGRAM DAILY;
     Route: 065
     Dates: start: 20180912
  2. WELLBUTRIN [Suspect]
     Active Substance: BUPROPION HYDROCHLORIDE
     Dosage: 300 MILLIGRAM DAILY;
     Route: 065

REACTIONS (8)
  - Insomnia [Unknown]
  - Anxiety [Unknown]
  - Cold sweat [Unknown]
  - Chest pain [Unknown]
  - Drug intolerance [Unknown]
  - Abdominal distension [Unknown]
  - Tonic convulsion [Recovered/Resolved]
  - Pollakiuria [Unknown]
